FAERS Safety Report 9349470 (Version 1)
Quarter: 2013Q2

REPORT INFORMATION
  Report Type: Spontaneous
  Country: US (occurrence: US)
  Receive Date: 20130614
  Receipt Date: 20130614
  Transmission Date: 20140414
  Serious: Yes (Other)
  Sender: FDA-Public Use
  Company Number: US-JNJFOC-20130604568

PATIENT
  Age: 80 Year
  Sex: Female
  Weight: 52.62 kg

DRUGS (4)
  1. ZYRTEC-D [Suspect]
     Indication: NASAL DECONGESTION THERAPY
     Route: 048
     Dates: end: 20130603
  2. ZYRTEC-D [Suspect]
     Indication: DYSPNOEA
     Route: 048
     Dates: end: 20130603
  3. PANTOPRAZOLE SODIUM [Concomitant]
     Indication: GASTROOESOPHAGEAL REFLUX DISEASE
     Dosage: STARTED 1 YEAR AGO
     Route: 065
  4. AMLODIPINE [Concomitant]
     Indication: BLOOD PRESSURE
     Dosage: STARTED 6 MONTHS AGO
     Route: 065

REACTIONS (3)
  - Loss of consciousness [Recovered/Resolved]
  - Blood pressure decreased [Recovered/Resolved]
  - Drug administered to patient of inappropriate age [Unknown]
